FAERS Safety Report 7161964-9 (Version None)
Quarter: 2010Q4

REPORT INFORMATION
  Report Type: 
  Country: None (occurrence: None)
  Receive Date: 20101215
  Receipt Date: 20100728
  Transmission Date: 20110411
  Serious: Yes (Hospitalization, Other)
  Sender: FDA-Public Use
  Company Number: JP-PFIZER INC-2010090622

PATIENT
  Age: 72 Year
  Sex: Female

DRUGS (2)
  1. LYRICA [Suspect]
     Dosage: 150 MG, 1X/DAY
     Route: 048
  2. VALTREX [Concomitant]
     Indication: HERPES ZOSTER

REACTIONS (5)
  - ASTHENIA [None]
  - DYSARTHRIA [None]
  - GASTRIC ULCER HAEMORRHAGE [None]
  - GRIP STRENGTH DECREASED [None]
  - JOINT STIFFNESS [None]
